FAERS Safety Report 4429286-4 (Version None)
Quarter: 2004Q3

REPORT INFORMATION
  Report Type: 
  Country: None (occurrence: None)
  Receive Date: 20040818
  Receipt Date: 20040818
  Transmission Date: 20050211
  Serious: Yes (Hospitalization)
  Sender: FDA-Public Use
  Company Number: None

PATIENT
  Age: 61 Year
  Sex: Female
  Weight: 44.5 kg

DRUGS (1)
  1. LISINOPRIL AND HYDROCHLOROTHIAZIDE [Suspect]
     Indication: HYPERTENSION
     Dosage: 1 TAB  DAILY  ORAL
     Route: 048

REACTIONS (4)
  - CONVULSION [None]
  - DISORIENTATION [None]
  - HYPONATRAEMIA [None]
  - POSTICTAL STATE [None]
